FAERS Safety Report 6483098-9 (Version None)
Quarter: 2009Q4

REPORT INFORMATION
  Report Type: 
  Country: None (occurrence: None)
  Receive Date: 20091209
  Receipt Date: 20091130
  Transmission Date: 20100525
  Serious: Yes (Other)
  Sender: FDA-Public Use
  Company Number: FI-ROCHE-672034

PATIENT
  Sex: Male

DRUGS (2)
  1. COPEGUS [Suspect]
     Indication: HEPATITIS C
     Dosage: FREQUENCY: 3+2 TABLETS PER DAY.
     Route: 048
     Dates: start: 20090206, end: 20090617
  2. PEG-INTRON [Concomitant]
     Indication: HEPATITIS C
     Dates: start: 20090206, end: 20090617

REACTIONS (1)
  - CARDIAC FAILURE [None]
